FAERS Safety Report 22636577 (Version 6)
Quarter: 2024Q1

REPORT INFORMATION
  Report Type: Spontaneous
  Country: US (occurrence: US)
  Receive Date: 20230623
  Receipt Date: 20240328
  Transmission Date: 20240410
  Serious: Yes (Other)
  Sender: FDA-Public Use
  Company Number: US-PFIZER INC-PV202200055274

PATIENT
  Age: 74 Year
  Sex: Female
  Weight: 86.2 kg

DRUGS (2)
  1. TIKOSYN [Suspect]
     Active Substance: DOFETILIDE
     Indication: Atrial fibrillation
     Dosage: (125 MCG, TAKE 3 TABS EVERY 12 HOURS)
     Route: 048
  2. TIKOSYN [Suspect]
     Active Substance: DOFETILIDE
     Dosage: TAKE 3 TABS BY MOUTH EVERY 12 HOURS
     Route: 048

REACTIONS (4)
  - Drug dependence [Unknown]
  - Off label use [Unknown]
  - Pain [Unknown]
  - Memory impairment [Unknown]
